FAERS Safety Report 14388559 (Version 5)
Quarter: 2018Q1

REPORT INFORMATION
  Report Type: Spontaneous
  Country: IN (occurrence: IN)
  Receive Date: 20180115
  Receipt Date: 20180226
  Transmission Date: 20180509
  Serious: Yes (Death, Hospitalization, Other)
  Sender: FDA-Public Use
  Company Number: IN-LUNDBECK-DKLU2042555

PATIENT
  Age: 8 Year
  Sex: Female
  Weight: 32 kg

DRUGS (6)
  1. OXCARBAZEPINE. [Suspect]
     Active Substance: OXCARBAZEPINE
     Indication: IDIOPATHIC GENERALISED EPILEPSY
     Route: 065
     Dates: start: 201310, end: 20160416
  2. SODIUM VALPROATE [Suspect]
     Active Substance: VALPROATE SODIUM
     Route: 065
  3. CLOBAZAM [Suspect]
     Active Substance: CLOBAZAM
     Indication: IDIOPATHIC GENERALISED EPILEPSY
     Route: 048
     Dates: start: 201310
  4. LEVETIRACETAM. [Suspect]
     Active Substance: LEVETIRACETAM
     Indication: IDIOPATHIC GENERALISED EPILEPSY
     Route: 065
     Dates: start: 201310
  5. SODIUM VALPROATE [Suspect]
     Active Substance: VALPROATE SODIUM
     Indication: IDIOPATHIC GENERALISED EPILEPSY
     Route: 065
     Dates: start: 201210, end: 20160416
  6. PHENOBARBITONE [Suspect]
     Active Substance: PHENOBARBITAL
     Indication: IDIOPATHIC GENERALISED EPILEPSY
     Route: 065
     Dates: start: 201603, end: 20160417

REACTIONS (4)
  - Sepsis [Fatal]
  - Nosocomial infection [Fatal]
  - Generalised tonic-clonic seizure [Unknown]
  - Drug reaction with eosinophilia and systemic symptoms [Unknown]

NARRATIVE: CASE EVENT DATE: 20160404
